FAERS Safety Report 7213794-7 (Version None)
Quarter: 2011Q1

REPORT INFORMATION
  Report Type: 
  Country: None (occurrence: None)
  Receive Date: 20110106
  Receipt Date: 20101227
  Transmission Date: 20110831
  Serious: Yes (Hospitalization)
  Sender: FDA-Public Use
  Company Number: US-ELI_LILLY_AND_COMPANY-US201101000236

PATIENT
  Sex: Female

DRUGS (5)
  1. LANTUS [Concomitant]
     Dosage: 36 U, DAILY (1/D)
  2. HUMALOG [Suspect]
     Indication: DIABETES MELLITUS
     Dosage: UNK, AS NEEDED
     Dates: start: 20101225
  3. HUMALOG [Suspect]
     Dosage: UNK, AS NEEDED
  4. HUMALOG [Suspect]
     Dosage: 25 U, OTHER
     Dates: start: 20101225
  5. HUMALOG [Suspect]
     Dosage: 20 U, OTHER
     Dates: start: 20101225

REACTIONS (3)
  - BLOOD GLUCOSE INCREASED [None]
  - DRUG INEFFECTIVE [None]
  - HOSPITALISATION [None]
